FAERS Safety Report 17012347 (Version 1)
Quarter: 2019Q4

REPORT INFORMATION
  Report Type: Spontaneous
  Country: US (occurrence: US)
  Receive Date: 20191108
  Receipt Date: 20191108
  Transmission Date: 20200122
  Serious: Yes (Other)
  Sender: FDA-Public Use
  Company Number: US-ELI_LILLY_AND_COMPANY-US201910015941

PATIENT
  Age: 64 Year
  Sex: Female

DRUGS (6)
  1. METFORMIN [Concomitant]
     Active Substance: METFORMIN HYDROCHLORIDE
     Indication: DIABETES MELLITUS
     Dosage: UNK
     Dates: start: 20181212
  2. HUMULIN R [Suspect]
     Active Substance: INSULIN HUMAN
     Indication: DIABETES MELLITUS
     Dosage: 7 U, TID
     Route: 058
  3. GLUCAGON. [Suspect]
     Active Substance: GLUCAGON
     Indication: DIABETES MELLITUS
     Dosage: UNK, UNKNOWN
     Route: 058
  4. NOVOLIN N [Concomitant]
     Active Substance: INSULIN HUMAN
     Indication: DIABETES MELLITUS
  5. HUMULIN R [Suspect]
     Active Substance: INSULIN HUMAN
     Dosage: 7 U, TID
     Route: 058
  6. GLUCAGON. [Suspect]
     Active Substance: GLUCAGON
     Dosage: UNK, UNKNOWN
     Route: 058

REACTIONS (8)
  - Sudden onset of sleep [Unknown]
  - Abnormal behaviour [Recovering/Resolving]
  - Fall [Unknown]
  - Loss of consciousness [Recovering/Resolving]
  - Dizziness [Recovering/Resolving]
  - Blood pressure decreased [Unknown]
  - Blood glucose decreased [Recovering/Resolving]
  - Blood glucose increased [Recovering/Resolving]

NARRATIVE: CASE EVENT DATE: 201904
